FAERS Safety Report 8935565 (Version 1)
Quarter: 2012Q4

REPORT INFORMATION
  Report Type: 
  Country: BE (occurrence: BE)
  Receive Date: 20121130
  Receipt Date: 20121130
  Transmission Date: 20130627
  Serious: Yes (Other)
  Sender: FDA-Public Use
  Company Number: PHHY2012BE109454

PATIENT
  Sex: Female

DRUGS (1)
  1. ACLASTA [Suspect]
     Dosage: Yearly
     Route: 042

REACTIONS (2)
  - Bone loss [Unknown]
  - Loose tooth [Not Recovered/Not Resolved]
